FAERS Safety Report 20820327 (Version 1)
Quarter: 2022Q2

REPORT INFORMATION
  Report Type: Spontaneous
  Country: US (occurrence: None)
  Receive Date: 20220511
  Receipt Date: 20220511
  Transmission Date: 20220721
  Serious: Yes (Other)
  Sender: FDA-Public Use
  Company Number: None

PATIENT
  Age: 60 Year
  Sex: Female
  Weight: 88.45 kg

DRUGS (1)
  1. BIOTIN\MINOXIDIL [Suspect]
     Active Substance: BIOTIN\MINOXIDIL
     Indication: Alopecia
     Dosage: FREQUENCY : TWICE A DAY;?
     Route: 061
     Dates: start: 20220305, end: 20220411

REACTIONS (6)
  - Hypersensitivity [None]
  - Headache [None]
  - Secretion discharge [None]
  - Hypertrichosis [None]
  - Peripheral swelling [None]
  - Peripheral swelling [None]

NARRATIVE: CASE EVENT DATE: 20220405
